FAERS Safety Report 4389279-2 (Version None)
Quarter: 2004Q2

REPORT INFORMATION
  Report Type: 
  Country: None (occurrence: None)
  Receive Date: 20040628
  Receipt Date: 20040618
  Transmission Date: 20050107
  Serious: Yes (Hospitalization)
  Sender: FDA-Public Use
  Company Number: 166-2004-0001

PATIENT
  Age: 40 Year
  Sex: Male

DRUGS (2)
  1. PHOSLO [Suspect]
     Indication: HYPERPHOSPHATAEMIA
  2. RENAGEL [Concomitant]

REACTIONS (1)
  - PANCREATITIS ACUTE [None]
